FAERS Safety Report 4742964-2 (Version None)
Quarter: 2005Q3

REPORT INFORMATION
  Report Type: 
  Country: None (occurrence: None)
  Receive Date: 20050804
  Receipt Date: 20050421
  Transmission Date: 20060218
  Serious: No
  Sender: FDA-Public Use
  Company Number: FACT0500371

PATIENT
  Age: 47 Year
  Sex: 0
  Weight: 79.4 kg

DRUGS (2)
  1. FACTIVE [Suspect]
     Indication: RESPIRATORY TRACT INFECTION BACTERIAL
     Dosage: 320 G, QD, ORAL
     Route: 048
  2. DEPO-MEDROL [Concomitant]

REACTIONS (1)
  - RASH GENERALISED [None]
